FAERS Safety Report 7789539-9 (Version None)
Quarter: 2011Q3

REPORT INFORMATION
  Report Type: 
  Country: None (occurrence: None)
  Receive Date: 20110930
  Receipt Date: 20110921
  Transmission Date: 20111222
  Serious: Yes (Hospitalization)
  Sender: FDA-Public Use
  Company Number: US-JNJFOC-20110905316

PATIENT
  Sex: Female
  Weight: 25.1 kg

DRUGS (4)
  1. TYLENOL-500 [Suspect]
     Indication: PYREXIA
     Route: 065
  2. TYLENOL-500 [Suspect]
     Route: 065
  3. MOTRIN [Suspect]
     Indication: PYREXIA
  4. NYQUIL [Suspect]
     Indication: PYREXIA
     Dates: start: 20100204

REACTIONS (1)
  - TOXIC EPIDERMAL NECROLYSIS [None]
